FAERS Safety Report 21132058 (Version 1)
Quarter: 2022Q3

REPORT INFORMATION
  Report Type: Spontaneous
  Country: US (occurrence: None)
  Receive Date: 20220726
  Receipt Date: 20220726
  Transmission Date: 20221027
  Serious: Yes (Other)
  Sender: FDA-Public Use
  Company Number: None

PATIENT
  Age: 62 Year
  Sex: Female
  Weight: 97.65 kg

DRUGS (13)
  1. OZEMPIC [Suspect]
     Active Substance: SEMAGLUTIDE
     Indication: Glucose tolerance impaired
     Dosage: FREQUENCY : WEEKLY;?
     Route: 058
     Dates: start: 20220703
  2. OZEMPIC [Suspect]
     Active Substance: SEMAGLUTIDE
     Indication: Cardiac disorder
  3. OZEMPIC [Suspect]
     Active Substance: SEMAGLUTIDE
     Indication: Weight decreased
  4. ALPRAZOLAM [Concomitant]
     Active Substance: ALPRAZOLAM
  5. AMLODIPINE BESYLATE [Concomitant]
     Active Substance: AMLODIPINE BESYLATE
  6. ATORVASTATIN [Concomitant]
     Active Substance: ATORVASTATIN
  7. BUPROPION [Concomitant]
     Active Substance: BUPROPION
  8. LISINOPRIL [Concomitant]
     Active Substance: LISINOPRIL
  9. XARELTO [Concomitant]
     Active Substance: RIVAROXABAN
  10. ASPIRIN [Concomitant]
     Active Substance: ASPIRIN
  11. CoQ10/ubiquinol [Concomitant]
  12. MAGNESIUM [Concomitant]
     Active Substance: MAGNESIUM
  13. VITAMIN D NOS [Concomitant]
     Active Substance: VITAMIN D NOS

REACTIONS (6)
  - Dizziness [None]
  - Nausea [None]
  - Muscular weakness [None]
  - Dysstasia [None]
  - Gait disturbance [None]
  - Vomiting [None]

NARRATIVE: CASE EVENT DATE: 20220717
